FAERS Safety Report 5158171-8 (Version None)
Quarter: 2006Q4

REPORT INFORMATION
  Report Type: 
  Country: None (occurrence: None)
  Receive Date: 20061120
  Receipt Date: 20061120
  Transmission Date: 20070319
  Serious: Yes (Hospitalization, Disabling, Other)
  Sender: FDA-Public Use
  Company Number: None

PATIENT
  Age: 62 Year
  Sex: Male

DRUGS (93)
  1. CHLOR-TRIMETON SINUS (CHLORPHENIRAMINE MALEATE/ PHENYLPROPANOLAMINE HY [Suspect]
     Indication: HYPERSENSITIVITY
     Dosage: PO
     Route: 048
     Dates: start: 19940605, end: 19940605
  2. CHLOR-TRIMETON SINUS (CHLORPHENIRAMINE MALEATE/ PHENYLPROPANOLAMINE HY [Suspect]
     Indication: NASOPHARYNGITIS
     Dosage: PO
     Route: 048
     Dates: start: 19940605, end: 19940605
  3. TRIAMINIC SRT [Suspect]
     Indication: NASOPHARYNGITIS
     Dates: start: 19940605, end: 19940605
  4. ALKA SELTZER PLUS COLD + FLU (APAP/CHLORPHENIRAMINE/PPA/DM) [Suspect]
     Indication: HYPERSENSITIVITY
     Dosage: 2 DF
  5. ALKA SELTZER PLUS COLD + FLU (APAP/CHLORPHENIRAMINE/PPA/DM) [Suspect]
     Indication: NASOPHARYNGITIS
     Dosage: 2 DF
  6. DILANTIN [Concomitant]
  7. NICODERM [Concomitant]
  8. TRANXENE [Concomitant]
  9. PHENOBARBITAL TAB [Concomitant]
  10. VASOTEC [Concomitant]
  11. NORVASC [Concomitant]
  12. NICODERM [Concomitant]
  13. RESTORIL [Concomitant]
  14. ASPIRIN [Concomitant]
  15. FORTAZ [Concomitant]
  16. VALIUM [Concomitant]
  17. ATARAX [Concomitant]
  18. PROTONIX [Concomitant]
  19. ZANTAC [Concomitant]
  20. LORTAB [Concomitant]
  21. NYSTATIN [Concomitant]
  22. NITROGLYCERIN [Concomitant]
  23. PEPCID [Concomitant]
  24. PROCARDIA [Concomitant]
  25. PROPULSID [Concomitant]
  26. CATAPRES TTS III PATCH [Concomitant]
  27. TERROUS SULFATE [Concomitant]
  28. MICONAZOLE [Concomitant]
  29. IMODIUM [Concomitant]
  30. VANCOMYCIN [Concomitant]
  31. FLAGYL [Concomitant]
  32. TYLENOL [Concomitant]
  33. MULTIPLE VITAMIN [Concomitant]
  34. THORAZINE [Concomitant]
  35. SINEMET [Concomitant]
  36. DEMEROL [Concomitant]
  37. ZOVIRAX [Concomitant]
  38. CARDURA [Concomitant]
  39. FLEXERIL [Concomitant]
  40. LOVENOX [Concomitant]
  41. ALADAT [Concomitant]
  42. ALBUTEROL NEB. [Concomitant]
  43. TICLIDE [Concomitant]
  44. RELAFEN [Concomitant]
  45. MULTI-VITAMIN [Concomitant]
  46. XYLOCAINE [Concomitant]
  47. CODEINE [Concomitant]
  48. NIZORAL [Concomitant]
  49. ATIVAN [Concomitant]
  50. ZYRTEC [Concomitant]
  51. LEVAQUIN [Concomitant]
  52. ROBITUSSIN [Concomitant]
  53. SOMA [Concomitant]
  54. TRAZODONE HCL [Concomitant]
  55. ZANAFLEZ [Concomitant]
  56. VALTREX [Concomitant]
  57. SEPTRA DS [Concomitant]
  58. GLUTOFAC ZX [Concomitant]
  59. PLAVIX [Concomitant]
  60. GLUCOTROL [Concomitant]
  61. GLUCOPHAGE [Concomitant]
  62. CLARITIN [Concomitant]
  63. DIFLUCAN [Concomitant]
  64. FAMVIR [Concomitant]
  65. CIPRO [Concomitant]
  66. LAMISIL [Concomitant]
  67. NORFLEX [Concomitant]
  68. ENTEX LIQUID [Concomitant]
  69. TRIVALENT FLU VACCINE [Concomitant]
  70. SKELAXIN [Concomitant]
  71. CORTISPORIN OINTMENT [Concomitant]
  72. BACLOFEN [Concomitant]
  73. LIORESAL [Concomitant]
  74. PHAZYME [Concomitant]
  75. NAPROSYN [Concomitant]
  76. PERMAX [Concomitant]
  77. ZOLOFT [Concomitant]
  78. PROTIPTYLINE [Concomitant]
  79. MYCELEX [Concomitant]
  80. CORTISPORIN [Concomitant]
  81. GARAMYCIN [Concomitant]
  82. AMANTADINE HCL [Concomitant]
  83. ELDEPRYL [Concomitant]
  84. MODURETIC 5-50 [Concomitant]
  85. APRESOLINE [Concomitant]
  86. HALCION [Concomitant]
  87. CALCIUM [Concomitant]
  88. INDERAL [Concomitant]
  89. HURRICANE SPRAY [Concomitant]
  90. MORPHINE SULFATE [Concomitant]
  91. ECONAZOLE NITRATE [Concomitant]
  92. PLENDIL [Concomitant]
  93. ACYCLOVIR [Concomitant]

REACTIONS (21)
  - AMNESIA [None]
  - ANGIOPATHY [None]
  - BEDRIDDEN [None]
  - CAROTID ARTERY STENOSIS [None]
  - CEREBRAL INFARCTION [None]
  - COGNITIVE DISORDER [None]
  - DYSPHASIA [None]
  - DYSSTASIA [None]
  - FEAR [None]
  - GASTROINTESTINAL TUBE INSERTION [None]
  - HEMIPLEGIA [None]
  - INJURY [None]
  - ISCHAEMIC STROKE [None]
  - MIGRAINE [None]
  - NERVOUS SYSTEM DISORDER [None]
  - PAIN [None]
  - PARALYSIS [None]
  - PNEUMONIA ASPIRATION [None]
  - POST PROCEDURAL COMPLICATION [None]
  - SPEECH DISORDER [None]
  - TREMOR [None]
